FAERS Safety Report 13761497 (Version 1)
Quarter: 2017Q3

REPORT INFORMATION
  Report Type: Spontaneous
  Country: AU (occurrence: AU)
  Receive Date: 20170717
  Receipt Date: 20170717
  Transmission Date: 20171127
  Serious: Yes (Other)
  Sender: FDA-Public Use
  Company Number: AU-MYLANLABS-2017M1042590

PATIENT

DRUGS (1)
  1. MERCAPTAMINE [Suspect]
     Active Substance: CYSTEAMINE
     Indication: CYSTINOSIS
     Dosage: UNK

REACTIONS (5)
  - Renal transplant [Unknown]
  - Disease complication [Unknown]
  - Renal failure [Unknown]
  - Muscular weakness [Unknown]
  - Respiratory failure [Unknown]
